FAERS Safety Report 21567732 (Version 1)
Quarter: 2022Q4

REPORT INFORMATION
  Report Type: Spontaneous
  Country: US (occurrence: US)
  Receive Date: 20221108
  Receipt Date: 20221108
  Transmission Date: 20230113
  Serious: No
  Sender: FDA-Public Use
  Company Number: US-SANOFI-01342274

PATIENT
  Age: 69 Year
  Sex: Female

DRUGS (2)
  1. LANTUS SOLOSTAR [Suspect]
     Active Substance: INSULIN GLARGINE
     Indication: Type 2 diabetes mellitus
     Dosage: 10 IU, QD
  2. OZEMPIC [Concomitant]
     Active Substance: SEMAGLUTIDE
     Dosage: UNK

REACTIONS (5)
  - Palpitations [Unknown]
  - Nausea [Unknown]
  - Headache [Unknown]
  - Weight decreased [Unknown]
  - Vision blurred [Recovering/Resolving]
